FAERS Safety Report 15227540 (Version 1)
Quarter: 2018Q3

REPORT INFORMATION
  Report Type: Spontaneous
  Country: ZA (occurrence: ZA)
  Receive Date: 20180801
  Receipt Date: 20180801
  Transmission Date: 20181010
  Serious: Yes (Hospitalization)
  Sender: FDA-Public Use
  Company Number: ZA-PFIZER INC-2018304932

PATIENT
  Age: 67 Year
  Sex: Female

DRUGS (9)
  1. HUMALOG MIX [Suspect]
     Active Substance: INSULIN LISPRO
     Dosage: UNK
  2. BILOCOR [Suspect]
     Active Substance: BISOPROLOL FUMARATE
     Dosage: UNK
  3. DIAPHAGE [Suspect]
     Active Substance: METFORMIN HYDROCHLORIDE
     Dosage: UNK
  4. ASPAVOR [Suspect]
     Active Substance: ATORVASTATIN
     Dosage: UNK
  5. ZYTOMIL [Suspect]
     Active Substance: ESCITALOPRAM OXALATE
     Dosage: UNK
  6. ZARTAN CO [Suspect]
     Active Substance: HYDROCHLOROTHIAZIDE\LOSARTAN POTASSIUM
     Dosage: UNK
  7. CLOPIWIN [Suspect]
     Active Substance: CLOPIDOGREL BISULFATE
     Dosage: UNK
  8. ECOTRIN [Suspect]
     Active Substance: ASPIRIN
     Dosage: UNK
  9. TRUSTAN [Suspect]
     Active Substance: ESOMEPRAZOLE
     Dosage: UNK

REACTIONS (2)
  - Cystitis [Unknown]
  - Gastric disorder [Unknown]
